FAERS Safety Report 26022937 (Version 1)
Quarter: 2025Q4

REPORT INFORMATION
  Report Type: Spontaneous
  Country: US (occurrence: US)
  Receive Date: 20251110
  Receipt Date: 20251110
  Transmission Date: 20260117
  Serious: No
  Sender: SAREPTA THERAPEUTICS
  Company Number: US-SAREPTA THERAPEUTICS INC.-SRP2025-006310

PATIENT
  Age: 14 Year
  Sex: Male

DRUGS (1)
  1. ELEVIDYS [Suspect]
     Active Substance: DELANDISTROGENE MOXEPARVOVEC-ROKL
     Indication: Product used for unknown indication
     Dosage: UNK, SINGLE
     Dates: start: 20240904, end: 20240904

REACTIONS (1)
  - Flatulence [Recovered/Resolved]

NARRATIVE: CASE EVENT DATE: 20240901
